FAERS Safety Report 6355683-6 (Version None)
Quarter: 2009Q3

REPORT INFORMATION
  Report Type: 
  Country: None (occurrence: None)
  Receive Date: 20090910
  Receipt Date: 20090828
  Transmission Date: 20100115
  Serious: Yes (Life-Threatening, Hospitalization)
  Sender: FDA-Public Use
  Company Number: 2009AL005712

PATIENT
  Age: 63 Year
  Sex: Female

DRUGS (4)
  1. VENLAFAXINE HCL [Suspect]
     Indication: DEPRESSION
     Dosage: 75 MG; BID;PO
     Route: 048
     Dates: start: 20020710, end: 20070801
  2. CO-CODAMOL [Concomitant]
  3. RABEPRAZOLE [Concomitant]
  4. ATORVASTATIN [Concomitant]

REACTIONS (2)
  - CARDIAC FAILURE [None]
  - LEFT VENTRICULAR DYSFUNCTION [None]
